FAERS Safety Report 16193397 (Version 1)
Quarter: 2019Q2

REPORT INFORMATION
  Report Type: Spontaneous
  Country: US (occurrence: US)
  Receive Date: 20190413
  Receipt Date: 20190413
  Transmission Date: 20190711
  Serious: No
  Sender: FDA-Public Use
  Company Number: US-BIOGEN-2019BI00721647

PATIENT
  Sex: Female

DRUGS (4)
  1. TECFIDERA [Suspect]
     Active Substance: DIMETHYL FUMARATE
     Indication: MULTIPLE SCLEROSIS
     Route: 065
  2. MARIJUANA [Concomitant]
     Active Substance: CANNABIS SATIVA SUBSP. INDICA TOP
     Route: 065
  3. FLEXERIL [Concomitant]
     Active Substance: CYCLOBENZAPRINE HYDROCHLORIDE
     Route: 065
  4. OCRELIZUMAB. [Concomitant]
     Active Substance: OCRELIZUMAB
     Route: 065

REACTIONS (6)
  - Swelling [Unknown]
  - Multiple sclerosis [Unknown]
  - Abdominal distension [Unknown]
  - Nausea [Unknown]
  - Alopecia [Unknown]
  - Skin discolouration [Unknown]
